FAERS Safety Report 22150649 (Version 1)
Quarter: 2023Q1

REPORT INFORMATION
  Report Type: Report from Study
  Country: JP (occurrence: JP)
  Receive Date: 20230329
  Receipt Date: 20230329
  Transmission Date: 20230418
  Serious: Yes (Other)
  Sender: FDA-Public Use
  Company Number: JP-GLAXOSMITHKLINE-JP2023JPN045446

PATIENT

DRUGS (35)
  1. MEPOLIZUMAB [Suspect]
     Active Substance: MEPOLIZUMAB
     Indication: Asthma
     Dosage: 40 MG
     Dates: start: 20200915, end: 20200915
  2. MEPOLIZUMAB [Suspect]
     Active Substance: MEPOLIZUMAB
     Dosage: 40 MG
     Dates: start: 20201013, end: 20201013
  3. MEPOLIZUMAB [Suspect]
     Active Substance: MEPOLIZUMAB
     Dosage: 40 MG
     Dates: start: 20201110, end: 20201110
  4. MEPOLIZUMAB [Suspect]
     Active Substance: MEPOLIZUMAB
     Dosage: 40 MG
     Dates: start: 20201208, end: 20201208
  5. MEPOLIZUMAB [Suspect]
     Active Substance: MEPOLIZUMAB
     Dosage: 40 MG
     Dates: start: 20210106, end: 20210106
  6. MEPOLIZUMAB [Suspect]
     Active Substance: MEPOLIZUMAB
     Dosage: 40 MG
     Dates: start: 20210202, end: 20210202
  7. MEPOLIZUMAB [Suspect]
     Active Substance: MEPOLIZUMAB
     Dosage: 40 MG
     Dates: start: 20210303, end: 20210303
  8. MEPOLIZUMAB [Suspect]
     Active Substance: MEPOLIZUMAB
     Dosage: 40 MG
     Dates: start: 20210331, end: 20210331
  9. MEPOLIZUMAB [Suspect]
     Active Substance: MEPOLIZUMAB
     Dosage: 40 MG
     Dates: start: 20210427, end: 20210427
  10. MEPOLIZUMAB [Suspect]
     Active Substance: MEPOLIZUMAB
     Dosage: 100 MG
     Dates: start: 20210525, end: 20210525
  11. MEPOLIZUMAB [Suspect]
     Active Substance: MEPOLIZUMAB
     Dosage: 100 MG
     Dates: start: 20210624, end: 20210624
  12. MEPOLIZUMAB [Suspect]
     Active Substance: MEPOLIZUMAB
     Dosage: 100 MG
     Dates: start: 20210731, end: 20210731
  13. MEPOLIZUMAB [Suspect]
     Active Substance: MEPOLIZUMAB
     Dosage: 100 MG
     Dates: start: 20210826, end: 20210826
  14. FLUTICASONE PROPIONATE [Suspect]
     Active Substance: FLUTICASONE PROPIONATE
     Indication: Asthma
     Dosage: 400 ?G, 1D
     Route: 055
     Dates: end: 20210427
  15. SINGULAIR TABLETS [Concomitant]
     Indication: Asthma
     Dosage: 10 MG, 1D
     Route: 048
  16. PREDONINE [Concomitant]
     Active Substance: PREDNISOLONE
     Indication: Asthma
     Dosage: 5 MG, 1D
     Route: 048
  17. MUCOSOLVAN TABLET [Concomitant]
     Indication: Asthma
     Dosage: 15 MG, 1D
     Route: 048
  18. CARBOCYSTEINE [Concomitant]
     Active Substance: CARBOCYSTEINE
     Indication: Asthma
     Dosage: 500 MG, 1D
     Route: 048
  19. CLENBUTEROL HYDROCHLORIDE [Concomitant]
     Active Substance: CLENBUTEROL HYDROCHLORIDE
     Indication: Asthma
     Dosage: 10 MG, 1D
     Route: 048
  20. ALESION TABLETS [Concomitant]
     Indication: Asthma
     Dosage: 20 MG, 1D
     Route: 048
  21. SOLU-CORTEF [Concomitant]
     Active Substance: HYDROCORTISONE SODIUM SUCCINATE
     Indication: Asthma
     Dosage: 200 MG, 1D
     Route: 042
     Dates: end: 20200930
  22. ALBUTEROL [Concomitant]
     Active Substance: ALBUTEROL
     Indication: Asthma
     Dosage: 0.3 ML, 1D
     Route: 055
     Dates: end: 20210614
  23. SULTANOL [Concomitant]
     Active Substance: ALBUTEROL SULFATE
     Indication: Asthma
     Dosage: 100 ?G, 1D
     Route: 055
     Dates: end: 20200909
  24. BISOLVON INHALANT SOLUTION [Concomitant]
     Indication: Asthma
     Dosage: 1 ML, 1D
     Route: 055
     Dates: end: 20210415
  25. INTAL [Concomitant]
     Active Substance: CROMOLYN SODIUM
     Indication: Asthma
     Dosage: 2 ML, 1D
     Route: 055
     Dates: end: 20210415
  26. DECADRON [Concomitant]
     Active Substance: DEXAMETHASONE
     Indication: Asthma
     Dosage: 0.5 MG, 1D
     Route: 055
     Dates: end: 20210614
  27. NEOPHYLLIN (JAPAN) [Concomitant]
     Indication: Asthma
     Dosage: 6.5 ML, 1D
     Dates: end: 20200930
  28. HUSTAZOL [Concomitant]
     Indication: Nasopharyngitis
  29. TRANEXAMIC ACID [Concomitant]
     Active Substance: TRANEXAMIC ACID
     Indication: Nasopharyngitis
  30. HIRUDOID FOAM [Concomitant]
  31. FENAZOL OINTMENT [Concomitant]
  32. WHITE PETROLATUM [Concomitant]
     Active Substance: PETROLATUM
  33. STIBRON OINTMENT [Concomitant]
  34. DIPHENHYDRAMINE [Concomitant]
     Active Substance: DIPHENHYDRAMINE
  35. TSUMURA SHAKUYAKUKANZOTO EXTRACT [Concomitant]
     Indication: Abdominal pain upper

REACTIONS (7)
  - Neuropathy peripheral [Recovered/Resolved]
  - Asthma [Recovered/Resolved]
  - Condition aggravated [Recovered/Resolved]
  - Asthma [Recovered/Resolved]
  - Condition aggravated [Recovered/Resolved]
  - Prescribed overdose [Unknown]
  - Inappropriate schedule of product administration [Unknown]

NARRATIVE: CASE EVENT DATE: 20200915
